FAERS Safety Report 7410049-2 (Version None)
Quarter: 2011Q2

REPORT INFORMATION
  Report Type: 
  Country: None (occurrence: None)
  Receive Date: 20110412
  Receipt Date: 20100708
  Transmission Date: 20111010
  Serious: No
  Sender: FDA-Public Use
  Company Number: US-BAUSCH-2010BL003685

PATIENT
  Age: 70 Year
  Sex: Female

DRUGS (8)
  1. LEVOBUNOLOL HYDROCHLORIDE [Suspect]
     Route: 047
     Dates: start: 20100711
  2. LEVOBUNOLOL HYDROCHLORIDE [Suspect]
     Route: 047
     Dates: start: 20100708, end: 20100709
  3. LEVOBUNOLOL HYDROCHLORIDE [Suspect]
     Route: 047
     Dates: start: 20100706, end: 20100706
  4. LEVOBUNOLOL HYDROCHLORIDE [Suspect]
     Route: 047
     Dates: start: 20100707, end: 20100707
  5. LEVOBUNOLOL HYDROCHLORIDE [Suspect]
     Route: 047
     Dates: start: 20100710, end: 20100710
  6. LEVOBUNOLOL HYDROCHLORIDE [Suspect]
     Route: 047
     Dates: start: 20100706, end: 20100706
  7. LEVOBUNOLOL HYDROCHLORIDE [Suspect]
     Route: 047
     Dates: start: 20100710, end: 20100710
  8. LEVOBUNOLOL HYDROCHLORIDE [Suspect]
     Indication: OPEN ANGLE GLAUCOMA
     Route: 047
     Dates: start: 20100702, end: 20100705

REACTIONS (3)
  - HEADACHE [None]
  - HYPERTENSION [None]
  - PALPITATIONS [None]
